FAERS Safety Report 4588367-5 (Version None)
Quarter: 2005Q1

REPORT INFORMATION
  Report Type: 
  Country: None (occurrence: None)
  Receive Date: 20050222
  Receipt Date: 20050210
  Transmission Date: 20050727
  Serious: Yes (Hospitalization)
  Sender: FDA-Public Use
  Company Number: JP-BRISTOL-MYERS SQUIBB COMPANY-12865820

PATIENT
  Age: 78 Year
  Sex: Male

DRUGS (3)
  1. MEVALOTIN [Suspect]
     Indication: HYPERLIPIDAEMIA
     Route: 048
     Dates: start: 20040922, end: 20050113
  2. CALSLOT [Concomitant]
     Indication: HYPERTENSION
     Dates: start: 20040825, end: 20040825
  3. GASTER [Concomitant]
     Indication: GASTRIC MUCOSAL LESION
     Dates: start: 20040825, end: 20040825

REACTIONS (2)
  - INFECTION [None]
  - RHABDOMYOLYSIS [None]
